FAERS Safety Report 9290201 (Version 5)
Quarter: 2013Q3

REPORT INFORMATION
  Report Type: Spontaneous
  Country: US (occurrence: US)
  Receive Date: 20130515
  Receipt Date: 20130823
  Transmission Date: 20140515
  Serious: Yes (Other)
  Sender: FDA-Public Use
  Company Number: US-PFIZER INC-2013147063

PATIENT
  Age: 58 Year
  Sex: Female

DRUGS (4)
  1. SUTENT [Suspect]
     Indication: RENAL CANCER
     Dosage: 50 MG ONCE DAILY X 4 WEEKS ON FOLLOWED BY 2 WEEKS OFF
     Route: 048
     Dates: start: 20130207
  2. LISINOPRIL [Concomitant]
     Dosage: UNK
  3. XARELTO [Concomitant]
     Dosage: UNK
  4. LASIX [Concomitant]
     Dosage: UNK

REACTIONS (5)
  - Sensitisation [Not Recovered/Not Resolved]
  - Diarrhoea [Unknown]
  - Dyspepsia [Unknown]
  - Oral pain [Unknown]
  - Thyroid disorder [Not Recovered/Not Resolved]
